FAERS Safety Report 7959129 (Version 3)
Quarter: 2013Q4

REPORT INFORMATION
  Report Type: Spontaneous
  Country: IT (occurrence: IT)
  Receive Date: 20110524
  Receipt Date: 20131205
  Transmission Date: 20140711
  Serious: Yes (Hospitalization, Other)
  Sender: FDA-Public Use
  Company Number: IT-ELI_LILLY_AND_COMPANY-IT201105003436

PATIENT
  Age: 52 Year
  Sex: Male

DRUGS (5)
  1. ZYPADHERA [Suspect]
     Indication: BORDERLINE PERSONALITY DISORDER
     Dosage: 300 MG, UNKNOWN
     Route: 030
     Dates: start: 20110509, end: 20110509
  2. ZYPREXA [Suspect]
     Indication: BORDERLINE PERSONALITY DISORDER
     Dosage: 5 MG, QD
     Route: 048
  3. BENZODIAZEPINE DERIVATIVES [Concomitant]
     Dosage: UNK UNK, PRN
     Route: 065
  4. PREGABALIN [Concomitant]
     Dosage: 75 MG, PRN
  5. RIVOTRIL [Concomitant]

REACTIONS (7)
  - Gait disturbance [Not Recovered/Not Resolved]
  - Speech disorder [Not Recovered/Not Resolved]
  - Electrocardiogram T wave abnormal [Recovered/Resolved]
  - Neuroleptic malignant syndrome [Recovered/Resolved with Sequelae]
  - Necrotising fasciitis [Recovering/Resolving]
  - Blood lactate dehydrogenase increased [Not Recovered/Not Resolved]
  - Fibrin D dimer increased [Not Recovered/Not Resolved]
